FAERS Safety Report 22047813 (Version 2)
Quarter: 2023Q1

REPORT INFORMATION
  Report Type: Report from Study
  Country: US (occurrence: US)
  Receive Date: 20230301
  Receipt Date: 20230306
  Transmission Date: 20230417
  Serious: No
  Sender: FDA-Public Use
  Company Number: US-002147023-NVSC2023US046736

PATIENT
  Age: 16 Year
  Sex: Male
  Weight: 96.082 kg

DRUGS (1)
  1. OMNITROPE [Suspect]
     Active Substance: SOMATROPIN
     Indication: Prader-Willi syndrome
     Dosage: 10 MG, QD
     Route: 058
     Dates: start: 20220725

REACTIONS (1)
  - Infection [Recovering/Resolving]

NARRATIVE: CASE EVENT DATE: 20230201
